FAERS Safety Report 6551254-7 (Version None)
Quarter: 2010Q1

REPORT INFORMATION
  Report Type: 
  Country: None (occurrence: None)
  Receive Date: 20100126
  Receipt Date: 20100114
  Transmission Date: 20100710
  Serious: Yes (Other)
  Sender: FDA-Public Use
  Company Number: US-RB-000999-10

PATIENT
  Age: 66 Year
  Sex: Male

DRUGS (1)
  1. MUCINEX D [Suspect]
     Route: 048
     Dates: start: 20100111

REACTIONS (1)
  - BLOOD PRESSURE FLUCTUATION [None]
